FAERS Safety Report 17193551 (Version 1)
Quarter: 2019Q4

REPORT INFORMATION
  Report Type: Spontaneous
  Country: NL (occurrence: NL)
  Receive Date: 20191223
  Receipt Date: 20191223
  Transmission Date: 20200122
  Serious: Yes (Hospitalization)
  Sender: FDA-Public Use
  Company Number: NL-ASTRAZENECA-2019SF79785

PATIENT
  Age: 52 Year
  Sex: Male
  Weight: 58 kg

DRUGS (6)
  1. PARACETAMOL [Concomitant]
     Active Substance: ACETAMINOPHEN
     Route: 048
  2. INDACATEROL/GLYCOPYRRONIUM [Concomitant]
     Dosage: INHALATION 1 CAPSULE, 85/43MCG
  3. DURVALUMAB. [Suspect]
     Active Substance: DURVALUMAB
     Indication: NON-SMALL CELL LUNG CANCER STAGE IIIB
     Dosage: 10.0MG/KG UNKNOWN
     Route: 042
     Dates: start: 20190726, end: 20191031
  4. CETOMACROGOL [Concomitant]
     Active Substance: COSMETICS
  5. OMEPRAZOL [Concomitant]
     Active Substance: OMEPRAZOLE
     Route: 048
  6. TEMAZEPAM. [Concomitant]
     Active Substance: TEMAZEPAM
     Dosage: 1 DOSAGE FORM ORAL AS NEEDED FOR THE NIGHT
     Route: 048

REACTIONS (1)
  - Langerhans^ cell histiocytosis [Unknown]

NARRATIVE: CASE EVENT DATE: 20191030
